FAERS Safety Report 5257899-9 (Version None)
Quarter: 2007Q1

REPORT INFORMATION
  Report Type: 
  Country: None (occurrence: None)
  Receive Date: 20070307
  Receipt Date: 20061010
  Transmission Date: 20070707
  Serious: Yes (Hospitalization)
  Sender: FDA-Public Use
  Company Number: US-GLAXOSMITHKLINE-A0623069A

PATIENT
  Age: 59 Year
  Sex: Female

DRUGS (2)
  1. REQUIP [Suspect]
     Indication: RESTLESS LEGS SYNDROME
     Route: 048
     Dates: start: 20060701, end: 20060801
  2. BLOOD PRESSURE MEDICATION [Concomitant]

REACTIONS (2)
  - BLOOD PRESSURE DECREASED [None]
  - RENAL FAILURE [None]
